FAERS Safety Report 26077939 (Version 1)
Quarter: 2025Q4

REPORT INFORMATION
  Report Type: Spontaneous
  Country: US (occurrence: US)
  Receive Date: 20251122
  Receipt Date: 20251122
  Transmission Date: 20260118
  Serious: Yes (Other)
  Sender: MDD OPERATIONS
  Company Number: US-MDD US Operations-MDD202510-004410

PATIENT
  Age: 56 Year
  Sex: Male

DRUGS (1)
  1. ONAPGO [Suspect]
     Active Substance: APOMORPHINE HYDROCHLORIDE
     Indication: Parkinson^s disease
     Dosage: 1.5 MG PER HOUR FOR 8-10 HOURS
     Dates: start: 20251008, end: 202510

REACTIONS (2)
  - Hallucination [Unknown]
  - Hyperphagia [Unknown]
